FAERS Safety Report 9958155 (Version 1)
Quarter: 2014Q1

REPORT INFORMATION
  Report Type: Report from Study
  Country: US (occurrence: US)
  Receive Date: 20140304
  Receipt Date: 20140304
  Transmission Date: 20141002
  Serious: No
  Sender: FDA-Public Use
  Company Number: US-ABBVIE-13P-163-1093380-00

PATIENT
  Age: 71 Year
  Sex: Female

DRUGS (15)
  1. HUMIRA [Suspect]
     Indication: RHEUMATOID ARTHRITIS
     Route: 058
     Dates: start: 201301
  2. FEXOFENADINE [Concomitant]
     Indication: MULTIPLE ALLERGIES
  3. PANTOPRAZOLE [Concomitant]
     Indication: BARRETT^S OESOPHAGUS
  4. HYDROCHLOROTHIAZIDE POTASSIUM CHLORIDE [Concomitant]
     Indication: HYPERTENSION
  5. BENAZEPRIL [Concomitant]
     Indication: HYPERTENSION
  6. METHOTREXATE [Concomitant]
     Indication: RHEUMATOID ARTHRITIS
  7. FOLIC ACID [Concomitant]
     Indication: RHEUMATOID ARTHRITIS
  8. CYMBALTA [Concomitant]
     Indication: FIBROMYALGIA
     Dosage: UP TO BID
  9. CALCIUM + VITAMIN D [Concomitant]
     Indication: PRODUCT USED FOR UNKNOWN INDICATION
  10. VITAMIN D [Concomitant]
     Indication: PRODUCT USED FOR UNKNOWN INDICATION
  11. FISH OIL [Concomitant]
     Indication: PRODUCT USED FOR UNKNOWN INDICATION
  12. MAGNESIUM [Concomitant]
     Indication: PRODUCT USED FOR UNKNOWN INDICATION
  13. OCCUVITE WITH LUTEN [Concomitant]
     Indication: MACULAR DEGENERATION
  14. REFRESH TEARS [Concomitant]
     Indication: MACULAR DEGENERATION
  15. BETAMETHASONE DIPROPIONATE [Concomitant]
     Indication: PSORIASIS

REACTIONS (2)
  - Injection site pain [Recovering/Resolving]
  - Injection site reaction [Recovering/Resolving]
